FAERS Safety Report 4693364-5 (Version None)
Quarter: 2005Q2

REPORT INFORMATION
  Report Type: 
  Country: None (occurrence: None)
  Receive Date: 20050615
  Receipt Date: 20050527
  Transmission Date: 20051028
  Serious: Yes (Other)
  Sender: FDA-Public Use
  Company Number: FACT0500410

PATIENT
  Age: 58 Year
  Sex: Male
  Weight: 88.4 kg

DRUGS (12)
  1. FACTIVE [Suspect]
     Indication: RESPIRATORY TRACT INFECTION BACTERIAL
     Dosage: 320 MG, QD, ORAL
     Route: 048
     Dates: start: 20050331, end: 20050406
  2. COUMADIN [Suspect]
     Dosage: SEE IMAGE, ORAL
     Route: 048
     Dates: start: 20041029
  3. CARDURA/IRE/ (DOXAZOSIN MESILATE) [Concomitant]
  4. VERAPAMIL [Concomitant]
  5. TESTOSTERONE [Concomitant]
  6. LASIX [Concomitant]
  7. AMIODARONE HCL [Concomitant]
  8. CHILDREN'S ASPIRIN [Concomitant]
  9. INSPRA [Concomitant]
  10. ADVAIR (FLUTICASONE PROPIONATE, SALMETEROL XINAFOATE) [Concomitant]
  11. METOLAZONE [Concomitant]
  12. TUSSIONEX PENNKINETIC (CHLORPHENAMINE, HYDROCHLORIDE) [Concomitant]

REACTIONS (10)
  - ABDOMINAL DISTENSION [None]
  - ABDOMINAL PAIN [None]
  - ACTIVATED PARTIAL THROMBOPLASTIN TIME PROLONGED [None]
  - COUGH [None]
  - DRUG INTERACTION [None]
  - HAEMATOMA [None]
  - INTERNATIONAL NORMALISED RATIO INCREASED [None]
  - PLATELET COUNT DECREASED [None]
  - PROTHROMBIN TIME PROLONGED [None]
  - WHEEZING [None]
